FAERS Safety Report 21969792 (Version 2)
Quarter: 2023Q1

REPORT INFORMATION
  Report Type: Spontaneous
  Country: MX (occurrence: MX)
  Receive Date: 20230208
  Receipt Date: 20230227
  Transmission Date: 20230417
  Serious: Yes (Other)
  Sender: FDA-Public Use
  Company Number: MX-BEH-2023155190

PATIENT

DRUGS (1)
  1. HUMAN IMMUNOGLOBULIN G [Suspect]
     Active Substance: HUMAN IMMUNOGLOBULIN G
     Indication: Guillain-Barre syndrome
     Dosage: 5 GRAM (50 ML)
     Route: 042

REACTIONS (4)
  - Anaphylactic reaction [Unknown]
  - Erythema [Unknown]
  - Headache [Unknown]
  - Suspected counterfeit product [Unknown]
